FAERS Safety Report 22914327 (Version 4)
Quarter: 2024Q4

REPORT INFORMATION
  Report Type: Report from Study
  Country: US (occurrence: US)
  Receive Date: 20230906
  Receipt Date: 20241223
  Transmission Date: 20250114
  Serious: Yes (Disabling)
  Sender: ROCHE
  Company Number: US-ROCHE-3413401

PATIENT
  Age: 86 Year
  Sex: Male
  Weight: 77.11 kg

DRUGS (7)
  1. VABYSMO [Suspect]
     Active Substance: FARICIMAB-SVOA
     Indication: Neovascular age-related macular degeneration
     Route: 050
     Dates: start: 2023
  2. VABYSMO [Suspect]
     Active Substance: FARICIMAB-SVOA
  3. VABYSMO [Suspect]
     Active Substance: FARICIMAB-SVOA
  4. VABYSMO [Suspect]
     Active Substance: FARICIMAB-SVOA
  5. AVASTIN [Suspect]
     Active Substance: BEVACIZUMAB
     Indication: Neovascular age-related macular degeneration
     Route: 050
  6. ELIQUIS [Concomitant]
     Active Substance: APIXABAN
  7. EYLEA [Concomitant]
     Active Substance: AFLIBERCEPT

REACTIONS (16)
  - Visual impairment [Not Recovered/Not Resolved]
  - Eye pain [Not Recovered/Not Resolved]
  - Discomfort [Not Recovered/Not Resolved]
  - Ocular hyperaemia [Recovered/Resolved]
  - Photophobia [Not Recovered/Not Resolved]
  - Vision blurred [Not Recovered/Not Resolved]
  - Haemorrhage [Recovered/Resolved]
  - Off label use [Unknown]
  - Mitral valve disease [Unknown]
  - Mitral valve repair [Unknown]
  - Lacrimation increased [Not Recovered/Not Resolved]
  - Optic nerve injury [Unknown]
  - Visual acuity reduced [Not Recovered/Not Resolved]
  - Intraocular pressure increased [Unknown]
  - Diplopia [Unknown]
  - Eye disorder [Unknown]

NARRATIVE: CASE EVENT DATE: 20230801
